FAERS Safety Report 15438205 (Version 2)
Quarter: 2018Q4

REPORT INFORMATION
  Report Type: Spontaneous
  Country: DE (occurrence: DE)
  Receive Date: 20180928
  Receipt Date: 20181022
  Transmission Date: 20190204
  Serious: Yes (Other)
  Sender: FDA-Public Use
  Company Number: DE-ROCHE-2190695

PATIENT
  Age: 70 Year
  Sex: Female
  Weight: 55 kg

DRUGS (7)
  1. ALECENSA [Suspect]
     Active Substance: ALECTINIB HYDROCHLORIDE
     Indication: NON-SMALL CELL LUNG CANCER
     Dosage: 1-0-1
     Route: 048
     Dates: start: 20180706, end: 20180825
  2. PANTOPRAZOL [Concomitant]
     Active Substance: PANTOPRAZOLE SODIUM
     Dosage: 0-1-0-0
     Route: 065
  3. DENOSUMAB [Concomitant]
     Active Substance: DENOSUMAB
     Dosage: EVERY 4-6 WEEKS
     Route: 065
     Dates: end: 20180702
  4. FORTECORTIN [Concomitant]
     Active Substance: DEXAMETHASONE
     Dosage: 1-0-0-0
     Route: 065
  5. TORASEMID [Concomitant]
     Active Substance: TORSEMIDE
     Dosage: 1-1-0-0
     Route: 065
  6. XARELTO [Concomitant]
     Active Substance: RIVAROXABAN
     Dosage: 1-0-0-0
     Route: 065
  7. PREDNISOLON [Concomitant]
     Active Substance: PREDNISOLONE
     Dosage: 2-0-0-0
     Route: 065
     Dates: start: 20180827

REACTIONS (3)
  - Platelet count increased [Unknown]
  - Pulmonary embolism [Unknown]
  - Haemolysis [Unknown]

NARRATIVE: CASE EVENT DATE: 20180720
